FAERS Safety Report 8273878-1 (Version None)
Quarter: 2012Q2

REPORT INFORMATION
  Report Type: 
  Country: None (occurrence: None)
  Receive Date: 20120409
  Receipt Date: 20120330
  Transmission Date: 20120825
  Serious: Yes (Other)
  Sender: FDA-Public Use
  Company Number: 2012P1011591

PATIENT
  Age: 75 Year
  Sex: Male
  Weight: 75.2971 kg

DRUGS (9)
  1. PRIMIDONE TAB [Suspect]
     Indication: FAMILIAL TREMOR
     Dosage: 150 MG;HS
     Dates: start: 20110801, end: 20120327
  2. MULTIPLE VITAMIN [Concomitant]
  3. METFORMIN HCL [Concomitant]
  4. DIGOXIN [Concomitant]
  5. LISINOPRIL [Concomitant]
  6. VITAMIN D [Concomitant]
  7. SIMVASTATIN [Concomitant]
  8. FISH OIL [Concomitant]
  9. ASPIRIN [Concomitant]

REACTIONS (2)
  - RASH MORBILLIFORM [None]
  - DRUG HYPERSENSITIVITY [None]
